FAERS Safety Report 7998374-8 (Version None)
Quarter: 2011Q4

REPORT INFORMATION
  Report Type: 
  Country: None (occurrence: None)
  Receive Date: 20111221
  Receipt Date: 20110822
  Transmission Date: 20120403
  Serious: No
  Sender: FDA-Public Use
  Company Number: US-GLAXOSMITHKLINE-A0941864A

PATIENT

DRUGS (2)
  1. LOVAZA [Suspect]
     Indication: LIPIDS INCREASED
     Dosage: 1G PER DAY
     Route: 048
  2. HYPERTENSION MED [Concomitant]

REACTIONS (1)
  - CONTUSION [None]
